FAERS Safety Report 19677024 (Version 1)
Quarter: 2021Q3

REPORT INFORMATION
  Report Type: Spontaneous
  Country: IN (occurrence: IN)
  Receive Date: 20210809
  Receipt Date: 20210809
  Transmission Date: 20211014
  Serious: Yes (Other)
  Sender: FDA-Public Use
  Company Number: IN-PFIZER INC-2017539428

PATIENT
  Age: 74 Year
  Sex: Female

DRUGS (5)
  1. LETROZOLE. [Concomitant]
     Active Substance: LETROZOLE
     Dosage: 2.5 MG, 1X/DAY
     Dates: start: 20171216
  2. ZOLDRIA [Concomitant]
     Active Substance: ZOLEDRONIC ACID
     Dosage: UNK, MONTHLY AS DAYCARE
     Route: 042
     Dates: end: 20181015
  3. PALBACE [Suspect]
     Active Substance: PALBOCICLIB
     Dosage: 100 MG, ONCE DAILY WITH FOOD (3 WEEKS ON + 1 WEEK OFF)
     Route: 048
     Dates: start: 20181029
  4. PALBACE [Suspect]
     Active Substance: PALBOCICLIB
     Dosage: 125 MG, CYCLIC
     Route: 048
     Dates: start: 20180718
  5. PALBACE [Suspect]
     Active Substance: PALBOCICLIB
     Indication: BREAST CANCER METASTATIC
     Dosage: 100 MG,ONCE DAILY WITH FOOD (3WEEKS ON 1 WEEK OFF)
     Route: 048
     Dates: start: 20171215

REACTIONS (12)
  - Ureteric stenosis [Unknown]
  - Iron deficiency [Unknown]
  - Toothache [Unknown]
  - Leukopenia [Unknown]
  - Diarrhoea [Unknown]
  - Intervertebral disc degeneration [Unknown]
  - Arthralgia [Unknown]
  - Back pain [Unknown]
  - Neoplasm progression [Unknown]
  - Hydronephrosis [Unknown]
  - White blood cells urine positive [Unknown]
  - Blood glucose abnormal [Unknown]

NARRATIVE: CASE EVENT DATE: 20180914
